FAERS Safety Report 6431493-6 (Version None)
Quarter: 2009Q4

REPORT INFORMATION
  Report Type: 
  Country: None (occurrence: None)
  Receive Date: 20091106
  Receipt Date: 20091029
  Transmission Date: 20100525
  Serious: Yes (Other)
  Sender: FDA-Public Use
  Company Number: BR-ABBOTT-09P-020-0605802-00

PATIENT
  Sex: Female
  Weight: 69 kg

DRUGS (4)
  1. HUMIRA [Suspect]
     Indication: RHEUMATOID ARTHRITIS
     Route: 058
     Dates: start: 20060101
  2. LEVOTHYROXINE SODIUM (PURAN T4) [Concomitant]
     Indication: HYPOTHYROIDISM
     Dosage: FORM STRENGTH 75 MCG
     Route: 048
  3. AMLODIPINE BESILATE, POTASSIUM LOSARTAN (LOTAR) [Concomitant]
     Indication: HYPERTENSION
     Route: 048
  4. DIPYRONE, ORPHENADRINE CITRATE, CAFFEINE (DORFLEX) [Concomitant]
     Indication: PAIN
     Dosage: FORM STRENGTH 500 MG
     Route: 048

REACTIONS (5)
  - DEVICE BREAKAGE [None]
  - GAIT DISTURBANCE [None]
  - LOCALISED INFECTION [None]
  - OSTEOMYELITIS [None]
  - RHEUMATOID ARTHRITIS [None]
